FAERS Safety Report 9209329 (Version 1)
Quarter: 2013Q1

REPORT INFORMATION
  Report Type: Spontaneous
  Country: US (occurrence: None)
  Receive Date: 20120724
  Receipt Date: 20120724
  Transmission Date: 20140127
  Serious: Yes (Hospitalization)
  Sender: FDA-Public Use
  Company Number: DSU-2011-06833

PATIENT
  Age: 90 Year
  Sex: Female

DRUGS (8)
  1. WELCHOL [Suspect]
     Indication: HYPERLIPIDAEMIA
     Route: 048
  2. SYNTHROID (LEVOTHYROXINE SODIUM) (LEVOTHYROXINE SODIUM) [Concomitant]
  3. FOSAMAX (ALENDRONATE SODIUM) (ALENDRONATE SODIUM) [Concomitant]
  4. CRESTOR (ROSUVASTATIN) (1 MILLIGRAM)(ROSUVASTATIN) [Concomitant]
  5. ZETIA (EZETIMIBE) (EZETIMIBE) [Concomitant]
  6. VITAMIN D (ERGOCALCIFEROL) (ERGOCALCIFEROL) [Concomitant]
  7. FISH OIL (FISH OIL) (FISH OIL) [Concomitant]
  8. COMPLETE MULTIVITAMIN (ERGOCALCIFEROL, ASCORBIC ACID, PYRIDOXINE HYDROCHLORIDE, THIAMINE HYDROCHLORIDE, RETINOL, RIBOFLAVIN, NICOTINAMIDE, CALCIUM PANTOTHENATE)(ERGOCALCIFEROL, ASCORBIC ACID, PYRIDOXINE HYDROCHLORIDE, THIAMINE HYDROCHLORIDE, RETINOL, RIBOFLAVIN, NICOTINAMIDE, CALCIUM PANTOTHENATE) [Concomitant]

REACTIONS (4)
  - Myocardial infarction [None]
  - Low density lipoprotein increased [None]
  - Blood cholesterol increased [None]
  - Nasopharyngitis [None]
